FAERS Safety Report 9178730 (Version 1)
Quarter: 2013Q1

REPORT INFORMATION
  Report Type: Spontaneous
  Country: BR (occurrence: BR)
  Receive Date: 20130321
  Receipt Date: 20130321
  Transmission Date: 20140127
  Serious: Yes (Other)
  Sender: FDA-Public Use
  Company Number: BR-SHIRE-ALL1-2013-01766

PATIENT
  Age: 46 Year
  Sex: Female

DRUGS (7)
  1. MESALAZINE [Suspect]
     Indication: GASTROINTESTINAL INFLAMMATION
     Dosage: 1 DF, 2X/DAY:BID
     Route: 048
     Dates: start: 20130206, end: 20130212
  2. MESALAZINE [Suspect]
     Indication: CROHN^S DISEASE
  3. CIPROFLOXACIN [Suspect]
     Indication: GASTROINTESTINAL INFLAMMATION
     Dosage: 1 DF, 2X/DAY:BID
     Route: 065
     Dates: start: 20130206, end: 20130212
  4. CIPROFLOXACIN [Suspect]
     Indication: CROHN^S DISEASE
  5. DONAREN [Concomitant]
     Indication: PRODUCT USED FOR UNKNOWN INDICATION
     Dosage: 1 DF, 1X/DAY:QD
     Route: 065
     Dates: start: 201212
  6. PRIMOGYNA [Concomitant]
     Indication: PRODUCT USED FOR UNKNOWN INDICATION
     Dosage: 2 MG, 1X/DAY:QD
     Route: 065
     Dates: start: 201212
  7. DUPHASTON [Concomitant]
     Indication: PRODUCT USED FOR UNKNOWN INDICATION
     Dosage: UNK, UNKNOWN
     Route: 065
     Dates: start: 201212

REACTIONS (7)
  - Laryngeal oedema [Recovered/Resolved]
  - Intranasal paraesthesia [Recovered/Resolved]
  - Paraesthesia oral [Recovered/Resolved]
  - Malaise [Recovered/Resolved]
  - Swelling face [Recovered/Resolved]
  - Off label use [Recovered/Resolved]
  - Inappropriate schedule of drug administration [Recovered/Resolved]
